FAERS Safety Report 4378589-0 (Version None)
Quarter: 2004Q2

REPORT INFORMATION
  Report Type: 
  Country: None (occurrence: None)
  Receive Date: 20040609
  Receipt Date: 20040528
  Transmission Date: 20050107
  Serious: Yes (Hospitalization)
  Sender: FDA-Public Use
  Company Number: 206638

PATIENT
  Age: 42 Year
  Sex: Female
  Weight: 75 kg

DRUGS (3)
  1. HERCEPTIN (TRASTUZUMAB) [Suspect]
     Indication: BREAST CANCER
     Dosage: SEE IMAGE
     Route: 042
     Dates: start: 20040416, end: 20040416
  2. HERCEPTIN (TRASTUZUMAB) [Suspect]
     Indication: BREAST CANCER
     Dosage: SEE IMAGE
     Route: 042
     Dates: start: 20040507, end: 20040517
  3. TAMOXIFEN CITRATE [Concomitant]

REACTIONS (3)
  - ACUTE CORONARY SYNDROME [None]
  - BLOOD CREATINE PHOSPHOKINASE INCREASED [None]
  - CARDIOMYOPATHY [None]
